FAERS Safety Report 12595980 (Version 1)
Quarter: 2016Q3

REPORT INFORMATION
  Report Type: Spontaneous
  Country: US (occurrence: US)
  Receive Date: 20160726
  Receipt Date: 20160726
  Transmission Date: 20161109
  Serious: Yes (Other)
  Sender: FDA-Public Use
  Company Number: US-MEDA-2016070104

PATIENT
  Sex: Male

DRUGS (1)
  1. MUSE [Suspect]
     Active Substance: ALPROSTADIL

REACTIONS (2)
  - Lower limb fracture [Recovering/Resolving]
  - Upper limb fracture [Unknown]

NARRATIVE: CASE EVENT DATE: 2016
